FAERS Safety Report 9813765 (Version 3)
Quarter: 2014Q1

REPORT INFORMATION
  Report Type: Report from Study
  Country: CA (occurrence: CA)
  Receive Date: 20140113
  Receipt Date: 20140211
  Transmission Date: 20141002
  Serious: Yes (Hospitalization, Other)
  Sender: FDA-Public Use
  Company Number: CA-ALEXION PHARMACEUTICALS INC.-A201304773

PATIENT
  Age: 63 Year
  Sex: Male
  Weight: 90 kg

DRUGS (28)
  1. SOLIRIS [Suspect]
     Indication: PAROXYSMAL NOCTURNAL HAEMOGLOBINURIA
     Dosage: 600 MG, QW
     Route: 042
     Dates: start: 20120510, end: 20120531
  2. SOLIRIS [Suspect]
     Dosage: 900 MG, Q2W
     Route: 042
     Dates: start: 20120607
  3. LUPRON [Concomitant]
     Indication: PROSTATE CANCER
     Dosage: 1 INJ. 30 MG, Q2 MONTHS
     Route: 058
     Dates: start: 2011
  4. AMLODIPINE [Concomitant]
     Indication: HYPERTENSION
     Dosage: 10 MG, 2 TABS, QD
     Route: 048
     Dates: start: 2006
  5. AMLODIPINE [Concomitant]
     Dosage: 10 MG, 1 TAB, QD
     Dates: start: 201207
  6. OMEPRAZOLE [Concomitant]
     Indication: ABDOMINAL DISCOMFORT
     Dosage: 20 MG, QD
     Route: 048
     Dates: start: 2006
  7. ACTONEL [Concomitant]
     Indication: PROPHYLAXIS
     Dosage: 35 MG, QW
     Route: 048
     Dates: start: 2006
  8. ALPHAGAN [Concomitant]
     Indication: CATARACT
     Dosage: 1 GTT, OD, BID
     Route: 047
     Dates: start: 2008
  9. PREDNISOLONE ACETATE [Concomitant]
     Indication: CATARACT
     Dosage: 1 GTT, OD, QID
     Route: 047
     Dates: start: 2010
  10. AZOPTIC [Concomitant]
     Indication: CATARACT
     Dosage: 1 GTT, OD, BID
     Route: 047
     Dates: start: 2008
  11. CARBOCAL [Concomitant]
     Indication: PROPHYLAXIS
     Dosage: 500-400 IU, 1 TAB, PO BID
     Route: 048
     Dates: start: 2006
  12. CRESTOR [Concomitant]
     Indication: HYPERCHOLESTEROLAEMIA
     Dosage: 10 MG, QD
     Route: 048
     Dates: start: 20120901
  13. FERROUS SULFATE [Concomitant]
     Indication: ANAEMIA
     Dosage: 300 MG, QD
     Route: 048
     Dates: start: 2006
  14. PREDNISONE [Concomitant]
     Indication: PROPHYLAXIS
     Dosage: 30 MG, QD
     Route: 048
     Dates: start: 2006
  15. ATACAND [Concomitant]
     Indication: HYPERTENSION
     Dosage: 32-25 MG, 1TAB, PO, QD
     Route: 048
     Dates: start: 2006
  16. VITAMIN B12 [Concomitant]
     Indication: ANAEMIA
     Dosage: 1000 ?G, QD
     Route: 048
     Dates: start: 2006
  17. FOLIC ACID [Concomitant]
     Indication: ANAEMIA
     Dosage: 5 MG, 1/2 TAB, QD
     Route: 048
     Dates: start: 2006
  18. ASA [Concomitant]
     Indication: HYPERTENSION
     Dosage: 80 MG, QD
     Route: 048
     Dates: start: 2006
  19. FLOMAX [Concomitant]
     Indication: PROSTATE CANCER
     Dosage: 0.4 MG, BID
     Route: 048
     Dates: start: 2011
  20. NOVOLIN [Concomitant]
     Indication: DIABETES MELLITUS
     Dosage: Q AM
     Route: 058
     Dates: start: 2007
  21. GLUCONORM [Concomitant]
     Indication: DIABETES MELLITUS
     Dosage: 2 MG, 2 TAB, QD
     Route: 048
     Dates: start: 2006
  22. METFORMIN [Concomitant]
     Indication: DIABETES MELLITUS
     Dosage: 850 MG, BID
     Route: 048
     Dates: start: 2006
  23. NAPROXEN [Concomitant]
     Indication: PROPHYLAXIS
     Dosage: 250 MG, QD-BID, PRN
     Route: 048
     Dates: start: 2011
  24. ACETAMINOPHEN [Concomitant]
     Indication: PAIN
     Dosage: 325 MG, 2 TABS, QID, PRN
     Route: 048
     Dates: start: 2012
  25. ACETAMINOPHEN [Concomitant]
     Indication: HEADACHE
  26. CORTISONE [Concomitant]
     Dosage: 25 MG, QD
     Route: 048
     Dates: start: 20120905
  27. LASIX [Concomitant]
     Indication: SWELLING
     Dosage: 10 MG, QOD
     Route: 048
     Dates: start: 20120902
  28. LASIX [Concomitant]
     Dosage: 20MG Q 2 DAYS
     Dates: start: 20131231

REACTIONS (8)
  - Rectal haemorrhage [Recovered/Resolved]
  - Febrile convulsion [Recovered/Resolved]
  - Pneumonia [Recovered/Resolved]
  - Haemoglobin decreased [Recovered/Resolved]
  - Pyrexia [Recovered/Resolved]
  - Cough [Not Recovered/Not Resolved]
  - Blood lactate dehydrogenase increased [Not Recovered/Not Resolved]
  - Oedema peripheral [Recovering/Resolving]
